FAERS Safety Report 11020382 (Version 3)
Quarter: 2015Q2

REPORT INFORMATION
  Report Type: Spontaneous
  Country: US (occurrence: US)
  Receive Date: 20150413
  Receipt Date: 20150426
  Transmission Date: 20150821
  Serious: Yes (Other)
  Sender: FDA-Public Use
  Company Number: US-ASTRAZENECA-2015SE12741

PATIENT
  Sex: Female
  Weight: 87.1 kg

DRUGS (3)
  1. METFORMIN [Concomitant]
     Active Substance: METFORMIN HYDROCHLORIDE
     Indication: TYPE 2 DIABETES MELLITUS
     Route: 065
  2. GLIPIZIDE. [Concomitant]
     Active Substance: GLIPIZIDE
     Indication: TYPE 2 DIABETES MELLITUS
     Route: 065
  3. BYDUREON [Suspect]
     Active Substance: EXENATIDE
     Indication: TYPE 2 DIABETES MELLITUS
     Route: 058
     Dates: start: 201412

REACTIONS (10)
  - Toxicity to various agents [Unknown]
  - Injection site vesicles [Unknown]
  - Local swelling [Unknown]
  - Injection site nodule [Unknown]
  - Injection site pruritus [Recovered/Resolved]
  - Gastrooesophageal reflux disease [Unknown]
  - Injection site cellulitis [Recovered/Resolved]
  - Eructation [Unknown]
  - Gastrointestinal disorder [Unknown]
  - Abdominal distension [Unknown]
